FAERS Safety Report 20034636 (Version 1)
Quarter: 2021Q4

REPORT INFORMATION
  Report Type: Spontaneous
  Country: DE (occurrence: DE)
  Receive Date: 20211104
  Receipt Date: 20211104
  Transmission Date: 20220303
  Serious: Yes (Hospitalization, Other)
  Sender: FDA-Public Use
  Company Number: DE-ADRED-06855-01

PATIENT
  Age: 60 Year
  Sex: Male
  Weight: 58 kg

DRUGS (11)
  1. OXALIPLATIN [Suspect]
     Active Substance: OXALIPLATIN
     Indication: Product used for unknown indication
     Dosage: NACH SCHEMA, INJEKTIONS-/INFUSIONSL?SUNG
     Route: 042
  2. FLUOROURACIL [Suspect]
     Active Substance: FLUOROURACIL
     Indication: Product used for unknown indication
     Dosage: NACH SCHEMA, INJEKTIONS-/INFUSIONSL?SUNG
     Route: 042
  3. IRINOTECAN [Suspect]
     Active Substance: IRINOTECAN
     Indication: Product used for unknown indication
     Dosage: NACH SCHEMA, INJEKTIONS-/INFUSIONSL?SUNG
     Route: 042
  4. LEUCOVORIN [Suspect]
     Active Substance: LEUCOVORIN
     Indication: Product used for unknown indication
     Dosage: NACH SCHEMA, INJEKTIONS-/INFUSIONSL?SUNG
     Route: 042
  5. LEVOTHYROXINE SODIUM [Concomitant]
     Active Substance: LEVOTHYROXINE SODIUM
     Dosage: 75 ?G, 1-0-0-0, TABLETTEN
     Route: 048
  6. METAMIZOL                          /06276701/ [Concomitant]
     Dosage: 40 GTT, 1-1-1-1, TROPFEN
     Route: 048
  7. VIGANTOL                           /00318501/ [Concomitant]
     Dosage: 1000 IE, 0-0-1-0, KAPSELN
     Route: 048
  8. METFORMIN [Concomitant]
     Active Substance: METFORMIN HYDROCHLORIDE
     Dosage: 500 MG, 1-0-1-0, TABLETTEN
     Route: 048
  9. FENTANYL [Concomitant]
     Active Substance: FENTANYL
     Dosage: 37.5 ?G/H, ALLE DREI TAGE WECHSEL, PFLASTER TRANSDERMAL
     Route: 062
  10. GLYCOPYRRONIUM\INDACATEROL [Concomitant]
     Active Substance: GLYCOPYRRONIUM\INDACATEROL
     Dosage: 1-0-0-0, PULVER KAPSELN
     Route: 055
  11. ATORVASTATIN [Concomitant]
     Active Substance: ATORVASTATIN
     Dosage: 20 MG, 0-0-1-0, TABLETTEN
     Route: 048

REACTIONS (4)
  - Cachexia [Unknown]
  - General physical health deterioration [Unknown]
  - Weight decreased [Unknown]
  - Gastritis haemorrhagic [Unknown]
